FAERS Safety Report 8938204 (Version 1)
Quarter: 2012Q4

REPORT INFORMATION
  Report Type: 
  Country: NL (occurrence: NL)
  Receive Date: 20121203
  Receipt Date: 20121203
  Transmission Date: 20130627
  Serious: Yes (Death, Other)
  Sender: FDA-Public Use
  Company Number: PHHY2012NL108696

PATIENT
  Age: 80 None
  Sex: Male

DRUGS (3)
  1. VOLTAREN [Suspect]
     Dosage: 2 DF, daily
     Route: 048
     Dates: start: 2001, end: 2002
  2. ANTICOAGULANTS [Concomitant]
     Route: 048
  3. BETA BLOCKING AGENTS [Concomitant]
     Indication: CARDIAC DISORDER

REACTIONS (2)
  - Death [Fatal]
  - Renal failure [Unknown]
